FAERS Safety Report 9215946 (Version 1)
Quarter: 2013Q2

REPORT INFORMATION
  Report Type: Spontaneous
  Country: GB (occurrence: None)
  Receive Date: 20130402
  Receipt Date: 20130402
  Transmission Date: 20140414
  Serious: Yes (Life-Threatening, Hospitalization)
  Sender: FDA-Public Use
  Company Number: CL-481-2013

PATIENT
  Age: 8 Year
  Sex: Male
  Weight: 38.4 kg

DRUGS (5)
  1. ONDANSETRON [Suspect]
     Indication: PROPHYLAXIS OF NAUSEA AND VOMITING
     Route: 042
     Dates: start: 20130304, end: 20130304
  2. ABIDEC (ASCORBIC ACID, CHOLECALCIFEROL, ERGOCALCIFEROL, NICOTINAMIDE, PYRIDOXINE HYDROCHLORIDE, RETINOL PALMITATE, RIBOFLAVINE SODIUM PHOSPHATE, THIAMINE HYDROCHLORIDE, AND VITAMIN A PALMITATE) [Concomitant]
  3. PROPOFOL [Concomitant]
  4. REMIFENTANIL [Concomitant]
  5. SEVOFLURANE [Concomitant]

REACTIONS (5)
  - Cardiac arrest [None]
  - Bradycardia [None]
  - Cardiac output decreased [None]
  - Nodal rhythm [None]
  - Electrocardiogram QT prolonged [None]
